FAERS Safety Report 24174028 (Version 1)
Quarter: 2024Q3

REPORT INFORMATION
  Report Type: Report from Study
  Country: IT (occurrence: IT)
  Receive Date: 20240805
  Receipt Date: 20240805
  Transmission Date: 20241017
  Serious: Yes (Hospitalization, Other)
  Sender: UCB
  Company Number: IT-UCBSA-2023045048

PATIENT
  Sex: Female

DRUGS (5)
  1. VIMPAT [Suspect]
     Active Substance: LACOSAMIDE
     Indication: Epilepsy
     Dosage: 100 MILLIGRAM, 2X/DAY (BID), 2 TABLETS OF 50 MG AM AND 2 TABLETS OF 50 MG PM
  2. VIMPAT [Suspect]
     Active Substance: LACOSAMIDE
     Dosage: 100 MILLIGRAM, 3X/DAY (TID), 2 TABLETS OF 50MG IN THE MORNING, 2 TABLETS 50MG AT 2 PM, AND 2 TABLETS
     Dates: start: 202308
  3. RIVOTRIL [Concomitant]
     Active Substance: CLONAZEPAM
     Indication: Product used for unknown indication
     Dosage: 5 GTT DROPS IN THE EVENING
     Dates: start: 202308
  4. LEVETIRACETAM [Concomitant]
     Active Substance: LEVETIRACETAM
     Indication: Product used for unknown indication
     Dosage: 3 TABLETS/DAY
  5. OXCARBAZEPINE [Concomitant]
     Active Substance: OXCARBAZEPINE
     Indication: Product used for unknown indication
     Dosage: 300 MILLIGRAM, UNK
     Route: 065

REACTIONS (13)
  - Seizure [Unknown]
  - Epilepsy [Unknown]
  - Anxiety [Unknown]
  - Syncope [Unknown]
  - Somnolence [Unknown]
  - Depressed mood [Unknown]
  - Decreased appetite [Unknown]
  - Fall [Unknown]
  - Contusion [Unknown]
  - Peripheral swelling [Unknown]
  - Scratch [Unknown]
  - Drug ineffective [Unknown]
  - Product use issue [Unknown]

NARRATIVE: CASE EVENT DATE: 20230801
